FAERS Safety Report 12335478 (Version 1)
Quarter: 2016Q2

REPORT INFORMATION
  Report Type: Spontaneous
  Country: US (occurrence: US)
  Receive Date: 20160504
  Receipt Date: 20160504
  Transmission Date: 20160815
  Serious: No
  Sender: FDA-Public Use
  Company Number: US-CELGENEUS-USA-2016047165

PATIENT
  Sex: Female

DRUGS (2)
  1. OTEZLA [Suspect]
     Active Substance: APREMILAST
     Dosage: .5
     Route: 048
  2. OTEZLA [Suspect]
     Active Substance: APREMILAST
     Indication: PSORIATIC ARTHROPATHY
     Dosage: STARTER PACK 20-30MG
     Route: 048

REACTIONS (6)
  - Cough [Unknown]
  - Malaise [Unknown]
  - Respiratory tract congestion [Unknown]
  - Headache [Unknown]
  - Abdominal distension [Unknown]
  - Decreased appetite [Unknown]
